FAERS Safety Report 4565582-8 (Version None)
Quarter: 2005Q1

REPORT INFORMATION
  Report Type: 
  Country: None (occurrence: None)
  Receive Date: 20050126
  Receipt Date: 20050106
  Transmission Date: 20050727
  Serious: Yes (Hospitalization)
  Sender: FDA-Public Use
  Company Number: US_0411108365

PATIENT
  Age: 55 Year
  Sex: Male
  Weight: 64 kg

DRUGS (8)
  1. FORTEO [Suspect]
     Indication: OSTEOPOROSIS
     Dosage: 20 UG DAY
     Dates: start: 20041105, end: 20041101
  2. CORAL CALCIUM [Concomitant]
  3. PREDNISONE [Concomitant]
  4. CLAN SR VERAPAMIL HYDROCHLORIDE) [Concomitant]
  5. DIPYRIDAMOLE [Concomitant]
  6. PREVACID (LANSOPRAZOLE0 [Concomitant]
  7. CALCIUM GLUCONATE [Concomitant]
  8. ZOCOR (SIMVASTATIN RATIOPHARM) [Concomitant]

REACTIONS (5)
  - CHEST PAIN [None]
  - CORONARY ARTERY OCCLUSION [None]
  - NAUSEA [None]
  - PHARMACEUTICAL PRODUCT COMPLAINT [None]
  - POST PROCEDURAL PAIN [None]
